FAERS Safety Report 13360451 (Version 1)
Quarter: 2017Q1

REPORT INFORMATION
  Report Type: Spontaneous
  Country: US (occurrence: US)
  Receive Date: 20170322
  Receipt Date: 20170322
  Transmission Date: 20170429
  Serious: No
  Sender: FDA-Public Use
  Company Number: US-009507513-1702USA012272

PATIENT

DRUGS (1)
  1. ZEPATIER [Suspect]
     Active Substance: ELBASVIR\GRAZOPREVIR
     Dosage: SPLIT TABLETS IN 3 PIECES
     Route: 048

REACTIONS (2)
  - No adverse event [Unknown]
  - Wrong technique in product usage process [Unknown]
